FAERS Safety Report 4797486-X (Version None)
Quarter: 2005Q4

REPORT INFORMATION
  Report Type: 
  Country: None (occurrence: None)
  Receive Date: 20051013
  Receipt Date: 20051003
  Transmission Date: 20060501
  Serious: Yes (Hospitalization)
  Sender: FDA-Public Use
  Company Number: US-ABBOTT-05P-163-0312835-00

PATIENT
  Sex: Female
  Weight: 68.1 kg

DRUGS (7)
  1. HUMIRA [Suspect]
     Indication: PSORIASIS
     Route: 058
     Dates: start: 20050101, end: 20050701
  2. CLONAZEPAM [Concomitant]
     Indication: RESTLESS LEGS SYNDROME
  3. CANDESARTAN CILEXETIL [Concomitant]
     Indication: BLOOD PRESSURE INCREASED
  4. ESOMEPRAZOLE [Concomitant]
     Indication: PROPHYLAXIS AGAINST GASTROINTESTINAL ULCER
  5. ASPIRIN [Concomitant]
     Indication: CEREBROVASCULAR ACCIDENT
  6. MULTI-VITAMINS [Concomitant]
     Indication: VITAMIN SUPPLEMENTATION
  7. PSYLLIUM HYDROPHILIC MUCILLOID [Concomitant]
     Indication: IRRITABLE BOWEL SYNDROME

REACTIONS (7)
  - BLOOD SODIUM DECREASED [None]
  - FATIGUE [None]
  - LOCAL SWELLING [None]
  - NECK PAIN [None]
  - PULMONARY FIBROSIS [None]
  - PYREXIA [None]
  - THYROIDITIS SUBACUTE [None]
